FAERS Safety Report 6211361-5 (Version None)
Quarter: 2009Q2

REPORT INFORMATION
  Report Type: 
  Country: None (occurrence: None)
  Receive Date: 20090602
  Receipt Date: 20090526
  Transmission Date: 20091009
  Serious: Yes (Other)
  Sender: FDA-Public Use
  Company Number: US-JNJCH-2009014609

PATIENT
  Age: 53 Year
  Sex: Female

DRUGS (1)
  1. LUBRIDERM DAILY MOISTURE [Suspect]
     Indication: DRY SKIN
     Dosage: TEXT:ENOUGH TO COVER AREA UNSPECIFIED
     Route: 061

REACTIONS (3)
  - APPLICATION SITE IRRITATION [None]
  - BREAST CANCER [None]
  - PAIN OF SKIN [None]
